FAERS Safety Report 6288323-5 (Version None)
Quarter: 2009Q3

REPORT INFORMATION
  Report Type: 
  Country: None (occurrence: None)
  Receive Date: 20090729
  Receipt Date: 20090721
  Transmission Date: 20100115
  Serious: Yes (Other)
  Sender: FDA-Public Use
  Company Number: CA-PFIZER INC-2009244286

PATIENT
  Age: 69 Year

DRUGS (1)
  1. SUNITINIB MALATE [Suspect]
     Indication: OVARIAN EPITHELIAL CANCER
     Dosage: 50 MG, 1X/DAY, 4 WEEKS ON AND 2 WEEKS OFF
     Route: 048
     Dates: start: 20070525, end: 20080214

REACTIONS (1)
  - PERIPHERAL SENSORY NEUROPATHY [None]
